FAERS Safety Report 20335799 (Version 2)
Quarter: 2022Q1

REPORT INFORMATION
  Report Type: Spontaneous
  Country: JP (occurrence: JP)
  Receive Date: 20220114
  Receipt Date: 20220222
  Transmission Date: 20220424
  Serious: Yes (Hospitalization, Other)
  Sender: FDA-Public Use
  Company Number: JP-GLAXOSMITHKLINE-JP2022JPN005179

PATIENT
  Age: 61 Year
  Sex: Male

DRUGS (2)
  1. VALTREX [Suspect]
     Active Substance: VALACYCLOVIR HYDROCHLORIDE
     Indication: Herpes zoster
     Dosage: 3000 MG/DAY
  2. ZOVIRAX [Suspect]
     Active Substance: ACYCLOVIR
     Dosage: 250 MG/DAY

REACTIONS (7)
  - Toxic encephalopathy [Unknown]
  - Altered state of consciousness [Recovered/Resolved]
  - Depressed level of consciousness [Recovered/Resolved]
  - Disorganised speech [Unknown]
  - Abnormal behaviour [Unknown]
  - Nuchal rigidity [Unknown]
  - Prescribed overdose [Unknown]
